FAERS Safety Report 6580648-9 (Version None)
Quarter: 2010Q1

REPORT INFORMATION
  Report Type: 
  Country: None (occurrence: None)
  Receive Date: 20100212
  Receipt Date: 20100204
  Transmission Date: 20100710
  Serious: Yes (Death)
  Sender: FDA-Public Use
  Company Number: IT-MILLENNIUM PHARMACEUTICALS, INC.-2010-01092

PATIENT

DRUGS (6)
  1. VELCADE [Suspect]
     Indication: MULTIPLE MYELOMA
     Dosage: 1.3 MG/M2, CYCLIC
  2. DEXAMETHASONE [Suspect]
     Indication: MULTIPLE MYELOMA
     Dosage: 40 MG, CYCLIC
  3. DOXIL [Suspect]
     Indication: MULTIPLE MYELOMA
     Dosage: 30 MG/M2, CYCLIC
  4. MELPHALAN HYDROCHLORIDE [Suspect]
     Indication: MULTIPLE MYELOMA
     Dosage: 100 MG/M2, UNK
  5. CYCLOPHOSPHAMIDE [Concomitant]
     Indication: HAEMATOPOIETIC STEM CELL MOBILISATION
  6. NEUPOGEN [Concomitant]
     Indication: HAEMATOPOIETIC STEM CELL MOBILISATION
     Dosage: 10 UG/KG, UNK

REACTIONS (1)
  - PULMONARY EMBOLISM [None]
